FAERS Safety Report 23522398 (Version 1)
Quarter: 2024Q1

REPORT INFORMATION
  Report Type: Spontaneous
  Country: GB (occurrence: GB)
  Receive Date: 20240214
  Receipt Date: 20240214
  Transmission Date: 20240409
  Serious: Yes (Hospitalization, Other)
  Sender: FDA-Public Use
  Company Number: None

PATIENT
  Age: 45 Year
  Sex: Female

DRUGS (1)
  1. VORTIOXETINE [Suspect]
     Active Substance: VORTIOXETINE
     Indication: Depressed mood
     Dosage: 20 MILLIGRAM
     Route: 065
     Dates: start: 20220801, end: 20230904

REACTIONS (2)
  - Drug withdrawal syndrome [Unknown]
  - Therapy cessation [Unknown]

NARRATIVE: CASE EVENT DATE: 20230918
